FAERS Safety Report 9635004 (Version 4)
Quarter: 2014Q2

REPORT INFORMATION
  Report Type: Report from Study
  Country: BR (occurrence: BR)
  Receive Date: 20131021
  Receipt Date: 20140410
  Transmission Date: 20141212
  Serious: Yes (Other)
  Sender: FDA-Public Use
  Company Number: BR-ROCHE-1290515

PATIENT
  Sex: Female

DRUGS (9)
  1. XOLAIR [Suspect]
     Indication: ASTHMA
     Dosage: ONE AMPOULE EVERY 4 WEEKS
     Route: 065
     Dates: start: 20131008
  2. XOLAIR [Suspect]
     Route: 058
  3. XOLAIR [Suspect]
     Dosage: ONE AMPOULE FOR EVERY 30 DAYS
     Route: 065
     Dates: start: 20131003
  4. PREDNISONE [Concomitant]
     Route: 065
  5. ACETYLSALICYLIC ACID [Concomitant]
     Route: 065
  6. DIOSMIN [Concomitant]
     Route: 065
  7. ALENDRONATE [Concomitant]
     Route: 065
  8. BUSONID [Concomitant]
     Route: 065
     Dates: start: 201302
  9. BUSONID [Concomitant]
     Route: 065

REACTIONS (8)
  - Rheumatic disorder [Not Recovered/Not Resolved]
  - Hypokinesia [Not Recovered/Not Resolved]
  - Varicose vein [Not Recovered/Not Resolved]
  - Throat irritation [Not Recovered/Not Resolved]
  - Cough [Not Recovered/Not Resolved]
  - Arthralgia [Not Recovered/Not Resolved]
  - Fatigue [Not Recovered/Not Resolved]
  - Drug ineffective [Unknown]
